FAERS Safety Report 22656049 (Version 1)
Quarter: 2023Q2

REPORT INFORMATION
  Report Type: Report from Study
  Country: US (occurrence: US)
  Receive Date: 20230629
  Receipt Date: 20230629
  Transmission Date: 20230722
  Serious: Yes (Hospitalization)
  Sender: FDA-Public Use
  Company Number: US-ABBVIE-5309219

PATIENT
  Sex: Male

DRUGS (1)
  1. IMBRUVICA [Suspect]
     Active Substance: IBRUTINIB
     Indication: Lymphoid leukaemia (in remission)
     Dosage: TIME INTERVAL: 0.33333333 DAYS: LAST ADMIN DATE - 2023
     Route: 048
     Dates: start: 202304

REACTIONS (6)
  - Renal failure [Unknown]
  - Night sweats [Unknown]
  - Vomiting [Unknown]
  - Frequent bowel movements [Unknown]
  - Weight decreased [Unknown]
  - Cough [Unknown]

NARRATIVE: CASE EVENT DATE: 20230101
